FAERS Safety Report 8215283-X (Version None)
Quarter: 2012Q1

REPORT INFORMATION
  Report Type: 
  Country: None (occurrence: None)
  Receive Date: 20120316
  Receipt Date: 20120309
  Transmission Date: 20120608
  Serious: Yes (Other)
  Sender: FDA-Public Use
  Company Number: BR-SANOFI-AVENTIS-2012SA016396

PATIENT
  Age: 83 Year
  Sex: Female
  Weight: 83 kg

DRUGS (3)
  1. METFORMIN HYDROCHLORIDE [Concomitant]
     Route: 048
  2. LANTUS [Suspect]
     Route: 058
     Dates: start: 20050101
  3. OPTIPEN [Suspect]
     Indication: DEVICE THERAPY

REACTIONS (3)
  - BLINDNESS [None]
  - CATARACT [None]
  - CHOROIDAL EFFUSION [None]
